FAERS Safety Report 6821134-8 (Version None)
Quarter: 2010Q3

REPORT INFORMATION
  Report Type: 
  Country: None (occurrence: None)
  Receive Date: 20100707
  Receipt Date: 20080319
  Transmission Date: 20110219
  Serious: No
  Sender: FDA-Public Use
  Company Number: US-PFIZER INC-2008001483

PATIENT
  Sex: Female
  Weight: 86.18 kg

DRUGS (4)
  1. ZOLOFT [Suspect]
     Indication: HYSTERECTOMY
     Dates: start: 20071201, end: 20071225
  2. ZOLOFT [Suspect]
     Indication: DEPRESSION
  3. ZOLOFT [Suspect]
     Indication: ANXIETY
  4. MORPHINE [Concomitant]
     Indication: PAIN

REACTIONS (9)
  - ABNORMAL BEHAVIOUR [None]
  - AGGRESSION [None]
  - AGITATION [None]
  - BODY HEIGHT DECREASED [None]
  - DISTURBANCE IN ATTENTION [None]
  - HOSTILITY [None]
  - INSOMNIA [None]
  - SOMNOLENCE [None]
  - TACHYPHRENIA [None]
